FAERS Safety Report 21017795 (Version 1)
Quarter: 2022Q2

REPORT INFORMATION
  Report Type: Spontaneous
  Country: US (occurrence: None)
  Receive Date: 20220628
  Receipt Date: 20220628
  Transmission Date: 20220721
  Serious: Yes (Disabling)
  Sender: FDA-Public Use
  Company Number: None

PATIENT
  Age: 67 Year
  Sex: Female
  Weight: 50.35 kg

DRUGS (1)
  1. ALENDRONATE SODIUM [Suspect]
     Active Substance: ALENDRONATE SODIUM
     Indication: Osteoporosis prophylaxis
     Dosage: OTHER FREQUENCY : 1/WK AM BEFORE BRE;?
     Route: 048
     Dates: start: 20220506, end: 20220506

REACTIONS (5)
  - Groin pain [None]
  - Dysstasia [None]
  - Gait inability [None]
  - Medical device site pain [None]
  - Impaired work ability [None]

NARRATIVE: CASE EVENT DATE: 20220506
